FAERS Safety Report 8025419-1 (Version None)
Quarter: 2012Q1

REPORT INFORMATION
  Report Type: 
  Country: None (occurrence: None)
  Receive Date: 20120105
  Receipt Date: 20111227
  Transmission Date: 20120608
  Serious: Yes (Hospitalization, Other)
  Sender: FDA-Public Use
  Company Number: CHPA2011US018671

PATIENT
  Sex: Female
  Weight: 60.771 kg

DRUGS (2)
  1. THERAFLU UNKNOWN [Suspect]
     Indication: NASOPHARYNGITIS
     Dosage: UNK DF, UNK
     Route: 048
  2. DRUG THERAPY NOS [Concomitant]
     Indication: INSOMNIA
     Dosage: UNK, PRN

REACTIONS (12)
  - FALL [None]
  - DISABILITY [None]
  - EATING DISORDER [None]
  - PSORIASIS [None]
  - WEIGHT DECREASED [None]
  - LACERATION [None]
  - FEELING ABNORMAL [None]
  - LOWER LIMB FRACTURE [None]
  - PRURITUS [None]
  - BALANCE DISORDER [None]
  - PANIC ATTACK [None]
  - GAIT DISTURBANCE [None]
